FAERS Safety Report 14171846 (Version 2)
Quarter: 2017Q4

REPORT INFORMATION
  Report Type: Report from Study
  Country: EG (occurrence: EG)
  Receive Date: 20171108
  Receipt Date: 20171120
  Transmission Date: 20180321
  Serious: No
  Sender: FDA-Public Use
  Company Number: EG-B.I. PHARMACEUTICALS,INC./RIDGEFIELD-2017-BI-039278

PATIENT
  Age: 55 Year
  Sex: Male
  Weight: 101 kg

DRUGS (7)
  1. CONTROLOC [Concomitant]
     Active Substance: PANTOPRAZOLE SODIUM
     Indication: VOMITING
  2. ALIMTA [Suspect]
     Active Substance: PEMETREXED DISODIUM
     Indication: EPITHELIOID MESOTHELIOMA
     Route: 042
     Dates: start: 20170518, end: 20170704
  3. CISPLATIN. [Suspect]
     Active Substance: CISPLATIN
     Indication: EPITHELIOID MESOTHELIOMA
     Route: 042
     Dates: start: 20170518, end: 20170704
  4. LASIX [Concomitant]
     Active Substance: FUROSEMIDE
     Indication: HYPERTENSION
     Dosage: DAILY DOSE: 40
     Route: 065
     Dates: start: 20170613
  5. BLINDED BIBF 1120 [Suspect]
     Active Substance: NINTEDANIB
     Indication: EPITHELIOID MESOTHELIOMA
     Route: 048
     Dates: start: 20170519, end: 20170703
  6. DEXAMETHASONE. [Suspect]
     Active Substance: DEXAMETHASONE
     Indication: PREMEDICATION
     Route: 065
     Dates: start: 20170520
  7. CONTROLOC [Concomitant]
     Active Substance: PANTOPRAZOLE SODIUM
     Indication: DECREASED APPETITE
     Dosage: STRENGTH: 40; UNIT DOSE: DAILY DOSE: 40
     Route: 065
     Dates: start: 20170520

REACTIONS (2)
  - Neutropenia [Recovered/Resolved]
  - Hypertension [Recovered/Resolved]

NARRATIVE: CASE EVENT DATE: 20170704
